FAERS Safety Report 7109687-6 (Version None)
Quarter: 2010Q4

REPORT INFORMATION
  Report Type: 
  Country: None (occurrence: None)
  Receive Date: 20101116
  Receipt Date: 20101116
  Transmission Date: 20110411
  Serious: No
  Sender: FDA-Public Use
  Company Number: None

PATIENT
  Age: 49 Year
  Sex: Female
  Weight: 118.8424 kg

DRUGS (1)
  1. DEFINITY [Suspect]
     Indication: CARDIAC DISORDER
     Dosage: 1.3 ML DILUTED IN 0.7 MLS N/S  6 MLS TOTAL GIVEN IV
     Route: 042
     Dates: start: 20101110, end: 20101110

REACTIONS (3)
  - BACK PAIN [None]
  - DYSPNOEA [None]
  - MUSCULOSKELETAL PAIN [None]
